FAERS Safety Report 8441409 (Version 4)
Quarter: 2012Q4

REPORT INFORMATION
  Report Type: 
  Country: US (occurrence: US)
  Receive Date: 20120305
  Receipt Date: 20121010
  Transmission Date: 20130627
  Serious: Yes (Hospitalization)
  Sender: FDA-Public Use
  Company Number: US-GLAXOSMITHKLINE-A0932421A

PATIENT
  Age: 59 Year
  Sex: Female

DRUGS (2)
  1. AVANDIA [Suspect]
     Indication: DIABETES MELLITUS
     Route: 048
     Dates: start: 2005, end: 2009
  2. AVANDAMET [Suspect]
     Indication: DIABETES MELLITUS
     Route: 065
     Dates: start: 2003, end: 2007

REACTIONS (5)
  - Myocardial infarction [Not Recovered/Not Resolved]
  - Angina unstable [Unknown]
  - Cardiovascular disorder [Unknown]
  - Depression [Unknown]
  - Coronary artery disease [Unknown]
